FAERS Safety Report 4938416-7 (Version None)
Quarter: 2006Q1

REPORT INFORMATION
  Report Type: 
  Country: None (occurrence: None)
  Receive Date: 20060309
  Receipt Date: 20060228
  Transmission Date: 20060701
  Serious: Yes (Other)
  Sender: FDA-Public Use
  Company Number: ZA-SANOFI-SYNTHELABO-F01200600580

PATIENT
  Sex: Male

DRUGS (4)
  1. PRIMAQUINE [Suspect]
     Indication: MALARIA
     Route: 048
     Dates: start: 20060202, end: 20060216
  2. QUININE [Concomitant]
     Indication: MALARIA
     Route: 042
  3. DOXYCYCLINE [Concomitant]
     Indication: MALARIA
     Route: 048
  4. EMPAPAED [Concomitant]

REACTIONS (1)
  - RENAL FAILURE [None]
